FAERS Safety Report 4921507-4 (Version None)
Quarter: 2006Q1

REPORT INFORMATION
  Report Type: 
  Country: None (occurrence: None)
  Receive Date: 20060222
  Receipt Date: 20060222
  Transmission Date: 20060701
  Serious: No
  Sender: FDA-Public Use
  Company Number: None

PATIENT
  Sex: Female
  Weight: 85.2762 kg

DRUGS (2)
  1. LISINOPRIL [Suspect]
     Indication: HYPERTENSION
     Dosage: 40MG 1 QD PO
     Route: 048
     Dates: start: 20050423, end: 20060103
  2. PROCARDIA XL [Suspect]
     Indication: HYPERTENSION
     Dosage: 30 MG 1 QD PO
     Route: 048
     Dates: start: 20050824, end: 20060103

REACTIONS (1)
  - HYPERTENSION [None]
